FAERS Safety Report 13527105 (Version 3)
Quarter: 2017Q4

REPORT INFORMATION
  Report Type: Report from Study
  Country: US (occurrence: BR)
  Receive Date: 20170509
  Receipt Date: 20171016
  Transmission Date: 20180320
  Serious: Yes (Other)
  Sender: FDA-Public Use
  Company Number: US-SUNOVION-2017SUN001965

PATIENT
  Sex: Male
  Weight: 85 kg

DRUGS (1)
  1. INDACATEROL AND GLYCOPYRROLATE [Suspect]
     Active Substance: GLYCOPYRROLATE\INDACATEROL MALEATE
     Indication: EMPHYSEMA
     Dosage: 1 DF, QD (50UG GLYCOPYRRONIUM/110UG INDACATEROL)
     Route: 055

REACTIONS (10)
  - Blood pressure increased [Recovering/Resolving]
  - Speech disorder [Unknown]
  - Drug ineffective [Unknown]
  - Myocardial infarction [Unknown]
  - Asthenia [Unknown]
  - Malaise [Unknown]
  - Lung disorder [Unknown]
  - Depressed mood [Unknown]
  - Condition aggravated [Unknown]
  - Cerebrovascular accident [Unknown]
